FAERS Safety Report 12218787 (Version 1)
Quarter: 2016Q1

REPORT INFORMATION
  Report Type: Report from Study
  Country: BR (occurrence: BR)
  Receive Date: 20160329
  Receipt Date: 20160329
  Transmission Date: 20160526
  Serious: Yes (Hospitalization, Other)
  Sender: FDA-Public Use
  Company Number: PHHY2016BR034958

PATIENT
  Sex: Female
  Weight: 58 kg

DRUGS (6)
  1. ONBREZ [Suspect]
     Active Substance: INDACATEROL
     Indication: BRONCHIAL DISORDER
     Dosage: 150 MG, Q12H
     Route: 055
  2. BEROTEC [Concomitant]
     Active Substance: FENOTEROL HYDROBROMIDE
     Indication: PRODUCT USED FOR UNKNOWN INDICATION
     Route: 065
  3. PANTOPRAZOLE [Concomitant]
     Active Substance: PANTOPRAZOLE SODIUM
     Indication: PRODUCT USED FOR UNKNOWN INDICATION
     Route: 065
  4. FORASEQ [Suspect]
     Active Substance: BUDESONIDE\FORMOTEROL FUMARATE
     Indication: BRONCHIAL DISORDER
     Dosage: 1 DF, Q12H (12UG FORMOTEROL FUMARATE, 400UG BUDESONIDE)
     Route: 055
  5. SEEBRI BREEZHALER [Suspect]
     Active Substance: GLYCOPYRROLATE
     Indication: BRONCHIAL DISORDER
     Dosage: 1 DF, QD
     Route: 055
  6. AEROLIN [Concomitant]
     Active Substance: ALBUTEROL
     Indication: PRODUCT USED FOR UNKNOWN INDICATION
     Route: 065

REACTIONS (5)
  - Body height decreased [Unknown]
  - Product use issue [Unknown]
  - Bronchospasm [Unknown]
  - Chest discomfort [Recovering/Resolving]
  - Weight decreased [Unknown]
